FAERS Safety Report 5506166-4 (Version None)
Quarter: 2007Q4

REPORT INFORMATION
  Report Type: 
  Country: None (occurrence: None)
  Receive Date: 20071101
  Receipt Date: 20071019
  Transmission Date: 20080405
  Serious: Yes (Life-Threatening, Hospitalization)
  Sender: FDA-Public Use
  Company Number: DSA_30793_2007

PATIENT
  Age: 59 Year
  Sex: Male

DRUGS (6)
  1. ENALAPRIL MALEATE [Suspect]
     Indication: ESSENTIAL HYPERTENSION
     Dosage: DF
     Dates: end: 20070408
  2. ASPIRIN [Suspect]
     Indication: CARDIAC FAILURE ACUTE
     Dosage: 100 MG QD
  3. ATENOLOL [Concomitant]
  4. VOLTAREN [Concomitant]
  5. PRESSIN [Concomitant]
  6. VERAPAMIL HYDROCHLORIDE [Concomitant]

REACTIONS (5)
  - ANAPHYLACTIC REACTION [None]
  - BRADYCARDIA [None]
  - CIRCULATORY COLLAPSE [None]
  - HYPOTENSION [None]
  - HYPOTHERMIA [None]
